FAERS Safety Report 5627509-7 (Version None)
Quarter: 2008Q1

REPORT INFORMATION
  Report Type: 
  Country: None (occurrence: None)
  Receive Date: 20080215
  Receipt Date: 20071102
  Transmission Date: 20080703
  Serious: No
  Sender: FDA-Public Use
  Company Number: A0691242A

PATIENT
  Age: 63 Year
  Sex: Female

DRUGS (4)
  1. COREG CR [Suspect]
     Dosage: 80MG PER DAY
     Route: 048
     Dates: start: 20070901
  2. ASPIRIN [Concomitant]
  3. ZOCOR [Concomitant]
  4. LISINOPRIL [Concomitant]

REACTIONS (1)
  - DIZZINESS [None]
